FAERS Safety Report 19414134 (Version 1)
Quarter: 2021Q2

REPORT INFORMATION
  Report Type: Report from Study
  Country: IE (occurrence: IE)
  Receive Date: 20210614
  Receipt Date: 20210614
  Transmission Date: 20210717
  Serious: Yes (Other)
  Sender: FDA-Public Use
  Company Number: IE-TEVA-2021-IE-1921527

PATIENT
  Age: 52 Year
  Sex: Female

DRUGS (1)
  1. AJOVY [Suspect]
     Active Substance: FREMANEZUMAB-VFRM
     Indication: MIGRAINE
     Dosage: 225MG/1.5ML
     Dates: start: 20201103

REACTIONS (6)
  - Dyspepsia [Recovered/Resolved]
  - Constipation [Recovered/Resolved]
  - Syncope [Unknown]
  - Abdominal discomfort [Recovered/Resolved]
  - Blood pressure decreased [Unknown]
  - Blepharospasm [Recovered/Resolved]

NARRATIVE: CASE EVENT DATE: 202011
